FAERS Safety Report 22188072 (Version 1)
Quarter: 2023Q2

REPORT INFORMATION
  Report Type: Spontaneous
  Country: FR (occurrence: FR)
  Receive Date: 20230408
  Receipt Date: 20230408
  Transmission Date: 20230722
  Serious: Yes (Other)
  Sender: FDA-Public Use
  Company Number: None

PATIENT
  Age: 48 Year
  Sex: Male
  Weight: 105 kg

DRUGS (1)
  1. LEVOFLOXACIN [Suspect]
     Active Substance: LEVOFLOXACIN
     Indication: Urinary tract infection
     Dosage: 1 DOSAGE FORM, (TOTAL), (1 PRISE UNIQUE)
     Route: 048
     Dates: start: 20221013, end: 20221013

REACTIONS (10)
  - Loss of consciousness [Recovered/Resolved]
  - Arrhythmia [Recovered/Resolved]
  - Arthralgia [Not Recovered/Not Resolved]
  - Visual acuity reduced [Recovered/Resolved]
  - Muscle fatigue [Not Recovered/Not Resolved]
  - Muscle spasms [Recovered/Resolved]
  - Asthma [Recovered/Resolved]
  - Muscle spasms [Recovered/Resolved]
  - Headache [Recovered/Resolved]
  - Vomiting [Recovered/Resolved]

NARRATIVE: CASE EVENT DATE: 20221013
